FAERS Safety Report 9881722 (Version 2)
Quarter: 2014Q1

REPORT INFORMATION
  Report Type: Spontaneous
  Country: CA (occurrence: US)
  Receive Date: 20140207
  Receipt Date: 20140207
  Transmission Date: 20141002
  Serious: No
  Sender: FDA-Public Use
  Company Number: CA-GILEAD-2012-0050437

PATIENT
  Age: 47 Year
  Sex: Male
  Weight: 82 kg

DRUGS (2)
  1. TRUVADA [Suspect]
     Indication: HIV INFECTION
     Dosage: UNK
  2. ISENTRESS [Concomitant]
     Indication: HIV INFECTION
     Dosage: UNK
     Dates: start: 20110101

REACTIONS (1)
  - Lipoatrophy [Not Recovered/Not Resolved]
